FAERS Safety Report 14302947 (Version 1)
Quarter: 2017Q4

REPORT INFORMATION
  Report Type: Spontaneous
  Country: FR (occurrence: FR)
  Receive Date: 20171219
  Receipt Date: 20171219
  Transmission Date: 20180321
  Serious: Yes (Hospitalization, Other)
  Sender: FDA-Public Use
  Company Number: FR-ASTRAZENECA-2017SF27273

PATIENT

DRUGS (5)
  1. ABILIFY [Suspect]
     Active Substance: ARIPIPRAZOLE
     Indication: BIPOLAR DISORDER
     Dosage: 5.0MG UNKNOWN
     Route: 048
     Dates: end: 20141019
  2. XEROQUEL [Suspect]
     Active Substance: QUETIAPINE FUMARATE
     Indication: BIPOLAR DISORDER
     Dosage: 1.0DF UNKNOWN
     Route: 048
     Dates: end: 20141017
  3. LEELOO [Suspect]
     Active Substance: ETHINYL ESTRADIOL\LEVONORGESTREL
     Indication: CONTRACEPTION
     Route: 048
     Dates: end: 20141017
  4. DOLIPRANE [Concomitant]
     Active Substance: ACETAMINOPHEN
     Indication: PRODUCT USED FOR UNKNOWN INDICATION
  5. XEROQUEL [Suspect]
     Active Substance: QUETIAPINE FUMARATE
     Indication: BIPOLAR DISORDER
     Dosage: QUETIAPINE, 1DF DAILY UNKNOWN
     Route: 048
     Dates: end: 20141017

REACTIONS (2)
  - Pulmonary embolism [Recovered/Resolved]
  - Venous thrombosis [Recovered/Resolved]

NARRATIVE: CASE EVENT DATE: 20141013
